FAERS Safety Report 6161485-6 (Version None)
Quarter: 2009Q2

REPORT INFORMATION
  Report Type: 
  Country: None (occurrence: None)
  Receive Date: 20090417
  Receipt Date: 20090408
  Transmission Date: 20091009
  Serious: Yes (Death)
  Sender: FDA-Public Use
  Company Number: 2009AL002025

PATIENT
  Age: 71 Year
  Sex: Male

DRUGS (1)
  1. DIGOXIN [Suspect]
     Indication: CARDIAC FAILURE CHRONIC
     Dosage: 0.25 MG, PO
     Route: 048

REACTIONS (8)
  - ANHEDONIA [None]
  - ARRHYTHMIA [None]
  - CORONARY ARTERY DISEASE [None]
  - ILL-DEFINED DISORDER [None]
  - MENTAL DISORDER [None]
  - MULTIPLE INJURIES [None]
  - PAIN [None]
  - THERAPEUTIC AGENT TOXICITY [None]
